FAERS Safety Report 16809999 (Version 1)
Quarter: 2019Q3

REPORT INFORMATION
  Report Type: Other
  Country: US (occurrence: US)
  Receive Date: 20190916
  Receipt Date: 20190916
  Transmission Date: 20191005
  Serious: Yes (Hospitalization, Other)
  Sender: FDA-Public Use
  Company Number: US-FDC LIMITED-2074485

PATIENT
  Age: 47 Year
  Sex: Male

DRUGS (1)
  1. CIPROFLOXACIN. [Suspect]
     Active Substance: CIPROFLOXACIN
     Indication: EPIDIDYMITIS
     Route: 065

REACTIONS (1)
  - Muscle rupture [Recovered/Resolved]
